FAERS Safety Report 7214115-6 (Version None)
Quarter: 2010Q4

REPORT INFORMATION
  Report Type: 
  Country: None (occurrence: None)
  Receive Date: 20101126
  Receipt Date: 20100119
  Transmission Date: 20110411
  Serious: Yes (Hospitalization, Disabling, Other)
  Sender: FDA-Public Use
  Company Number: WAES 0909USA01945

PATIENT
  Age: 62 Year
  Sex: Female

DRUGS (3)
  1. FOSAMAX [Suspect]
     Indication: OSTEOPOROSIS PROPHYLAXIS
     Dosage: PO
     Route: 048
     Dates: start: 20070901, end: 20080101
  2. FOSAMAX PLUS D [Suspect]
     Indication: OSTEOPOROSIS PROPHYLAXIS
     Dosage: PO
     Route: 048
     Dates: start: 20070101, end: 20080101
  3. ACTONEL [Suspect]

REACTIONS (14)
  - ADVERSE EVENT [None]
  - ANXIETY [None]
  - BONE DENSITY DECREASED [None]
  - DENTAL CARIES [None]
  - DEPRESSION [None]
  - GINGIVAL BLEEDING [None]
  - HEADACHE [None]
  - JAW DISORDER [None]
  - NAUSEA [None]
  - ORAL PAIN [None]
  - OSTEONECROSIS [None]
  - PAIN IN JAW [None]
  - PARAESTHESIA ORAL [None]
  - TOOTH FRACTURE [None]
